FAERS Safety Report 9443716 (Version 2)
Quarter: 2013Q3

REPORT INFORMATION
  Report Type: Report from Study
  Country: MX (occurrence: MX)
  Receive Date: 20130806
  Receipt Date: 20130829
  Transmission Date: 20140515
  Serious: Yes (Hospitalization, Other)
  Sender: FDA-Public Use
  Company Number: PHHY2012MX092516

PATIENT
  Age: 75 Year
  Sex: Female

DRUGS (9)
  1. CO-DIOVAN [Suspect]
     Indication: HYPERTENSION
     Dosage: 1 DF (320/12.5MG), DAILY
     Route: 048
     Dates: start: 201110
  2. CO-DIOVAN [Suspect]
     Dosage: UNK UKN, UNK
     Dates: start: 201202
  3. CO-DIOVAN [Suspect]
     Dosage: 1 DF (320/12.5 MG), DAILY
     Route: 048
     Dates: end: 201307
  4. CO-DIOVAN [Suspect]
     Dosage: 1 DF (320/12.5MG), DAILY
  5. NEXIUN MUX [Concomitant]
     Indication: GASTRITIS PROPHYLAXIS
     Dosage: 1 UKN, DAILY
     Dates: start: 2010
  6. DILATREND [Concomitant]
     Indication: CARDIAC DISORDER
     Dosage: 0.5 UKN, DAILY
     Dates: start: 2010
  7. VENALOT (TROXERUTIN/COUMARIN) [Concomitant]
     Indication: CARDIAC DISORDER
     Dosage: 2 UKN, DAILY
     Dates: start: 2010
  8. CAUDALINE [Concomitant]
     Indication: CARDIAC DISORDER
     Dosage: 0.5 UKN, DAILY
     Dates: start: 2010
  9. FLOTAC                                  /CHL/ [Concomitant]
     Indication: PAIN
     Dosage: 1 UKN, UNK
     Dates: start: 2010

REACTIONS (5)
  - Fall [Not Recovered/Not Resolved]
  - Bone disorder [Not Recovered/Not Resolved]
  - Osteoporosis [Unknown]
  - Influenza [Not Recovered/Not Resolved]
  - Oropharyngeal pain [Not Recovered/Not Resolved]
